FAERS Safety Report 8268957-9 (Version None)
Quarter: 2012Q2

REPORT INFORMATION
  Report Type: 
  Country: None (occurrence: None)
  Receive Date: 20120409
  Receipt Date: 20120403
  Transmission Date: 20120825
  Serious: Yes (Hospitalization)
  Sender: FDA-Public Use
  Company Number: BR-ASTRAZENECA-2011SE73137

PATIENT
  Age: 66 Year
  Sex: Male
  Weight: 70 kg

DRUGS (4)
  1. ATACAND HCT [Suspect]
     Indication: HYPERTENSION
     Dosage: 16/12.5 MG DAILY
     Route: 048
     Dates: end: 20111001
  2. LIPITOR [Concomitant]
     Route: 048
  3. ATACAND HCT [Suspect]
     Dosage: 8/12.5 MG
     Route: 048
     Dates: start: 20111001, end: 20120101
  4. ASPIRIN [Concomitant]
     Route: 048

REACTIONS (3)
  - HYPERTENSION [None]
  - CORONARY ARTERY OCCLUSION [None]
  - DRUG INEFFECTIVE [None]
